FAERS Safety Report 9681555 (Version 2)
Quarter: 2013Q4

REPORT INFORMATION
  Report Type: Report from Study
  Country: US (occurrence: US)
  Receive Date: 20131111
  Receipt Date: 20131111
  Transmission Date: 20140711
  Serious: Yes (Hospitalization, Other)
  Sender: FDA-Public Use
  Company Number: US-ABBVIE-13P-163-1143964-00

PATIENT
  Age: 51 Year
  Sex: Female
  Weight: 79 kg

DRUGS (10)
  1. HUMIRA [Suspect]
     Indication: PSORIASIS
     Route: 058
     Dates: start: 2007, end: 200809
  2. HUMIRA [Suspect]
     Route: 058
     Dates: start: 2008, end: 201307
  3. HUMIRA [Suspect]
     Route: 058
     Dates: start: 20130816, end: 20130816
  4. HUMIRA [Suspect]
     Route: 058
     Dates: start: 20130823
  5. METHOTREXATE [Concomitant]
     Indication: PSORIASIS
  6. ATENOLOL [Concomitant]
     Indication: HYPERTENSION
  7. LEVOTHYROXINE [Concomitant]
     Indication: PRODUCT USED FOR UNKNOWN INDICATION
  8. VITAMIN B12 [Concomitant]
     Indication: PRODUCT USED FOR UNKNOWN INDICATION
  9. FENOFIBRATE [Concomitant]
     Indication: PRODUCT USED FOR UNKNOWN INDICATION
     Dates: start: 201308
  10. IBUPROFEN [Concomitant]
     Indication: PAIN

REACTIONS (4)
  - Pain in extremity [Recovered/Resolved]
  - Localised infection [Recovered/Resolved]
  - Local swelling [Recovered/Resolved]
  - Pyrexia [Recovered/Resolved]
